FAERS Safety Report 13005909 (Version 1)
Quarter: 2016Q4

REPORT INFORMATION
  Report Type: Spontaneous
  Country: US (occurrence: US)
  Receive Date: 20161205
  Receipt Date: 20161205
  Transmission Date: 20170207
  Serious: Yes (Other)
  Sender: FDA-Public Use
  Company Number: None

PATIENT
  Age: 65 Year
  Sex: Male
  Weight: 90 kg

DRUGS (4)
  1. VITAMIN B12 [Concomitant]
     Active Substance: CYANOCOBALAMIN
  2. DAILY MULTIVITAMIN [Concomitant]
     Active Substance: VITAMINS
  3. CIALIS [Concomitant]
     Active Substance: TADALAFIL
  4. CIPROFLOXACIN. [Suspect]
     Active Substance: CIPROFLOXACIN
     Indication: APPENDICITIS PERFORATED
     Dosage: EVERY 12 HOURS
     Route: 048
     Dates: start: 20161102, end: 20161115

REACTIONS (3)
  - Arthralgia [None]
  - Rash erythematous [None]
  - Tendonitis [None]

NARRATIVE: CASE EVENT DATE: 20161118
